FAERS Safety Report 26094950 (Version 1)
Quarter: 2025Q4

REPORT INFORMATION
  Report Type: Spontaneous
  Country: US (occurrence: US)
  Receive Date: 20251126
  Receipt Date: 20251126
  Transmission Date: 20260118
  Serious: No
  Sender: AMGEN
  Company Number: US-AMGEN-USASP2025230373

PATIENT
  Age: 53 Year
  Sex: Male

DRUGS (3)
  1. MVASI [Suspect]
     Active Substance: BEVACIZUMAB-AWWB
     Indication: Colon cancer
     Dosage: 388 MILLIGRAM, Q2WK (EVERY 14 DAYS) (SPOILAGE DOSE)
     Route: 040
     Dates: start: 20251103
  2. OXALIPLATIN [Concomitant]
     Active Substance: OXALIPLATIN
     Indication: Colon cancer
     Dosage: UNK UNK, Q2WK
     Dates: start: 20251103, end: 20251119
  3. FLUOROURACIL [Concomitant]
     Active Substance: FLUOROURACIL
     Indication: Colon cancer
     Dosage: UNK UNK, Q2WK
     Dates: start: 20251103

REACTIONS (2)
  - Neutrophil count decreased [Not Recovered/Not Resolved]
  - Off label use [Unknown]

NARRATIVE: CASE EVENT DATE: 20251103
